FAERS Safety Report 16087712 (Version 2)
Quarter: 2019Q1

REPORT INFORMATION
  Report Type: Spontaneous
  Country: CH (occurrence: CH)
  Receive Date: 20190319
  Receipt Date: 20190324
  Transmission Date: 20190418
  Serious: Yes (Other)
  Sender: FDA-Public Use
  Company Number: CH-BAXTER-2019BAX005071

PATIENT
  Sex: Male

DRUGS (5)
  1. HOLOXAN 2 G [Suspect]
     Active Substance: IFOSFAMIDE
     Indication: NEOPLASM RECURRENCE
  2. UROMITEXAN 400 ML, L?SUNG ZUR INTRAVEN?SEN ANWENDUNG [Suspect]
     Active Substance: MESNA
     Indication: PRODUCT USED FOR UNKNOWN INDICATION
     Dosage: PALLIATIVE THERAPY, HIGH-DOSE THERAPY
     Route: 065
     Dates: start: 20190211
  3. OLARATUMAB [Suspect]
     Active Substance: OLARATUMAB
     Indication: DEDIFFERENTIATED LIPOSARCOMA
     Dosage: PALLIATIVE CHEMOTHERAPY
     Route: 065
     Dates: start: 20180907, end: 20181024
  4. DOXORUBICIN [Suspect]
     Active Substance: DOXORUBICIN
     Indication: DEDIFFERENTIATED LIPOSARCOMA
     Dosage: PALLIATIVE CHEMOTHERAPY
     Route: 065
     Dates: start: 20180907, end: 20181024
  5. HOLOXAN 2 G [Suspect]
     Active Substance: IFOSFAMIDE
     Indication: RETROPERITONEAL NEOPLASM
     Dosage: PALLIATIVE THERAPY, HIGH-DOSE THERAPY, 1G/QM KOF WHICH EQUALS 14 G ABSOLUTE IN 7 DAYS,
     Route: 065
     Dates: start: 20190211

REACTIONS (4)
  - Cholestasis [Unknown]
  - Disease progression [Unknown]
  - Blood bilirubin increased [Unknown]
  - Gamma-glutamyltransferase increased [Unknown]
